FAERS Safety Report 25607470 (Version 1)
Quarter: 2025Q3

REPORT INFORMATION
  Report Type: Spontaneous
  Country: US (occurrence: US)
  Receive Date: 20250725
  Receipt Date: 20250725
  Transmission Date: 20251021
  Serious: Yes (Hospitalization, Other)
  Sender: The J.Molner Company
  Company Number: US-THE J. MOLNER COMPANY-202507000031

PATIENT

DRUGS (1)
  1. CIPROFLOXACIN [Suspect]
     Active Substance: CIPROFLOXACIN
     Indication: Urinary tract infection
     Route: 048

REACTIONS (2)
  - Erythema multiforme [Recovered/Resolved]
  - Systemic lupus erythematosus [Recovered/Resolved]
